FAERS Safety Report 4646560-7 (Version None)
Quarter: 2005Q2

REPORT INFORMATION
  Report Type: 
  Country: None (occurrence: None)
  Receive Date: 20050427
  Receipt Date: 20041116
  Transmission Date: 20051028
  Serious: No
  Sender: FDA-Public Use
  Company Number: US-GLAXOSMITHKLINE-A0534170A

PATIENT
  Sex: Female

DRUGS (2)
  1. FLONASE [Suspect]
     Indication: DRUG USE FOR UNKNOWN INDICATION
  2. NASACORT AQ [Concomitant]
     Indication: DRUG USE FOR UNKNOWN INDICATION
     Route: 045

REACTIONS (1)
  - ADVERSE EVENT [None]
